FAERS Safety Report 13539110 (Version 3)
Quarter: 2017Q3

REPORT INFORMATION
  Report Type: Report from Study
  Country: JP (occurrence: JP)
  Receive Date: 20170512
  Receipt Date: 20170801
  Transmission Date: 20171127
  Serious: Yes (Death, Other)
  Sender: FDA-Public Use
  Company Number: PHJP2016JP033723

PATIENT
  Age: 47 Year
  Sex: Female

DRUGS (3)
  1. METHOTREXATE. [Concomitant]
     Active Substance: METHOTREXATE
     Indication: NON-SMALL CELL LUNG CANCER STAGE IV
     Dosage: 10 MG, QD
     Route: 024
     Dates: start: 20161012, end: 20161031
  2. ZYKADIA [Suspect]
     Active Substance: CERITINIB
     Indication: NON-SMALL CELL LUNG CANCER STAGE IV
     Dosage: 750 MG, QD
     Route: 048
     Dates: start: 20161012, end: 20161031
  3. ZYKADIA [Suspect]
     Active Substance: CERITINIB
     Dosage: 300 MG, QD
     Route: 048
     Dates: start: 20161109, end: 20170202

REACTIONS (5)
  - Lipase increased [Recovered/Resolved]
  - Non-small cell lung cancer stage IV [Fatal]
  - Liver disorder [Recovering/Resolving]
  - Amylase increased [Recovered/Resolved]
  - Malignant neoplasm progression [Fatal]

NARRATIVE: CASE EVENT DATE: 20161024
